FAERS Safety Report 6990145-4 (Version None)
Quarter: 2010Q3

REPORT INFORMATION
  Report Type: 
  Country: None (occurrence: None)
  Receive Date: 20100916
  Receipt Date: 20100506
  Transmission Date: 20110219
  Serious: Yes (Other)
  Sender: FDA-Public Use
  Company Number: DZ-PFIZER INC-2010057153

PATIENT
  Age: 72 Year
  Sex: Male

DRUGS (1)
  1. LYRICA [Suspect]
     Indication: PHANTOM PAIN
     Dosage: 150 MG, DAILY

REACTIONS (3)
  - DEPRESSED LEVEL OF CONSCIOUSNESS [None]
  - DISORIENTATION [None]
  - PYREXIA [None]
